FAERS Safety Report 16226079 (Version 2)
Quarter: 2020Q2

REPORT INFORMATION
  Report Type: Spontaneous
  Country: US (occurrence: US)
  Receive Date: 20190423
  Receipt Date: 20200422
  Transmission Date: 20200713
  Serious: Yes (Other)
  Sender: FDA-Public Use
  Company Number: US-NAPPMUNDI-USA-2019-0145609

PATIENT
  Sex: Male

DRUGS (3)
  1. PERCOCET                           /00446701/ [Suspect]
     Active Substance: ACETAMINOPHEN\OXYCODONE HYDROCHLORIDE\OXYCODONE TEREPHTHALATE
     Indication: PRODUCT USED FOR UNKNOWN INDICATION
     Dosage: 30 MG, UNK
     Route: 048
  2. OXYCODONE HYDROCHLORIDE (SIMILAR TO NDA 22-272) [Suspect]
     Active Substance: OXYCODONE HYDROCHLORIDE
     Indication: DRUG ABUSE
     Dosage: (5-10 X 30 MG) 150-300 MG, DAILY
  3. OXYCONTIN [Suspect]
     Active Substance: OXYCODONE HYDROCHLORIDE
     Indication: PRODUCT USED FOR UNKNOWN INDICATION
     Route: 048

REACTIONS (10)
  - Drug dependence [Recovering/Resolving]
  - Hyperhidrosis [Unknown]
  - Feeling cold [Unknown]
  - Drug abuse [Recovering/Resolving]
  - Drug withdrawal syndrome [Unknown]
  - Anxiety [Unknown]
  - Vomiting [Unknown]
  - Unevaluable event [Unknown]
  - Nausea [Unknown]
  - Loss of consciousness [Unknown]
